FAERS Safety Report 12562269 (Version 1)
Quarter: 2016Q3

REPORT INFORMATION
  Report Type: Spontaneous
  Country: US (occurrence: US)
  Receive Date: 20160715
  Receipt Date: 20160715
  Transmission Date: 20161109
  Serious: No
  Sender: FDA-Public Use
  Company Number: US-TARO-2016TAR00206

PATIENT
  Age: 84 Year
  Sex: Female
  Weight: 49.43 kg

DRUGS (5)
  1. CALCIUM [Concomitant]
     Active Substance: CALCIUM
     Dosage: UNK
  2. DESOXIMETASONE OINTMENT USP 0.25% [Suspect]
     Active Substance: DESOXIMETASONE
     Indication: DERMATOMYOSITIS
     Dosage: UNK UNK, 3X/DAY
     Route: 061
     Dates: start: 201511, end: 201512
  3. MULTIVITAMINS [Concomitant]
     Active Substance: VITAMINS
     Dosage: UNK
  4. BIOTIN [Concomitant]
     Active Substance: BIOTIN
     Dosage: UNK
  5. FLUOCINONIDE CREAM USP 0.05% [Suspect]
     Active Substance: FLUOCINONIDE
     Indication: DERMATOMYOSITIS
     Dosage: UNK UNK, 3X/DAY
     Route: 061
     Dates: start: 201512, end: 201512

REACTIONS (1)
  - Drug ineffective [Recovered/Resolved]

NARRATIVE: CASE EVENT DATE: 201511
